FAERS Safety Report 22340057 (Version 1)
Quarter: 2023Q2

REPORT INFORMATION
  Report Type: Report from Study
  Country: US (occurrence: US)
  Receive Date: 20230518
  Receipt Date: 20230518
  Transmission Date: 20230721
  Serious: No
  Sender: FDA-Public Use
  Company Number: US-002147023-NVSC2023US111895

PATIENT
  Sex: Male

DRUGS (1)
  1. BETAMETHASONE [Suspect]
     Active Substance: BETAMETHASONE
     Indication: Psoriatic arthropathy
     Route: 065

REACTIONS (7)
  - Red cell distribution width increased [Unknown]
  - Haemoglobin decreased [Unknown]
  - Haematocrit decreased [Unknown]
  - Red blood cell count increased [Unknown]
  - Mean cell volume decreased [Unknown]
  - Mean cell haemoglobin decreased [Unknown]
  - Drug ineffective [Unknown]
